FAERS Safety Report 25258731 (Version 1)
Quarter: 2025Q2

REPORT INFORMATION
  Report Type: Spontaneous
  Country: CN (occurrence: CN)
  Receive Date: 20250501
  Receipt Date: 20250501
  Transmission Date: 20250716
  Serious: Yes (Other)
  Sender: RELIANCE GENEMEDIX
  Company Number: CN-Reliance-000447

PATIENT
  Age: 91 Year
  Sex: Female
  Weight: 65 kg

DRUGS (2)
  1. CAPECITABINE [Suspect]
     Active Substance: CAPECITABINE
     Indication: Rectosigmoid cancer stage IV
     Dosage: THE DOSAGE WAS INCREASED TO 1,000 MG IN THE MORNING AND 1,500 MG IN THE EVENING.
     Dates: start: 20200605, end: 2020
  2. BEVACIZUMAB [Concomitant]
     Active Substance: BEVACIZUMAB
     Indication: Rectosigmoid cancer stage IV
     Dates: start: 2020

REACTIONS (2)
  - Rectal haemorrhage [Unknown]
  - Dyschezia [Unknown]

NARRATIVE: CASE EVENT DATE: 20200101
